FAERS Safety Report 22948603 (Version 2)
Quarter: 2023Q4

REPORT INFORMATION
  Report Type: Spontaneous
  Country: AU (occurrence: AU)
  Receive Date: 20230915
  Receipt Date: 20231002
  Transmission Date: 20240110
  Serious: Yes (Other)
  Sender: FDA-Public Use
  Company Number: AU-FreseniusKabi-FK202314253

PATIENT

DRUGS (2)
  1. WATER [Suspect]
     Active Substance: WATER
     Indication: Catheter management
     Dosage: PURCHASE CODE B321423
     Route: 042
  2. SODIUM CHLORIDE [Suspect]
     Active Substance: SODIUM CHLORIDE
     Indication: Catheter management
     Route: 042

REACTIONS (1)
  - Bacteraemia [Unknown]
